FAERS Safety Report 8183071-9 (Version None)
Quarter: 2012Q1

REPORT INFORMATION
  Report Type: 
  Country: None (occurrence: None)
  Receive Date: 20120305
  Receipt Date: 20120228
  Transmission Date: 20120608
  Serious: Yes (Death)
  Sender: FDA-Public Use
  Company Number: US-CELGENEUS-163-21880-12020126

PATIENT
  Sex: Female

DRUGS (14)
  1. METOPROLOL SUCCINATE [Concomitant]
     Dosage: 50 MILLIGRAM
     Route: 065
  2. DILAUDID [Concomitant]
     Indication: PAIN
     Dosage: 1-2 TABS
     Route: 065
  3. DECADRON [Concomitant]
     Dosage: 4 MILLIGRAM
     Route: 065
  4. BACTRIM DS [Concomitant]
     Indication: PROPHYLAXIS
     Dosage: .5 TABLET
     Route: 065
  5. DIOVAN [Concomitant]
     Indication: BLOOD PRESSURE
     Dosage: 80 MILLIGRAM
     Route: 065
  6. CA+ VIT D [Concomitant]
     Route: 065
  7. REVLIMID [Suspect]
     Dosage: 25 MILLIGRAM
     Route: 048
     Dates: start: 20110504
  8. ASPIRIN [Concomitant]
     Dosage: 162 MILLIGRAM
     Route: 065
  9. METHIMAZOLE [Concomitant]
     Dosage: 5 MILLIGRAM
     Route: 065
  10. GABAPENTIN [Concomitant]
     Dosage: 300 MILLIGRAM
     Route: 065
  11. LACTULOSE [Concomitant]
     Indication: CONSTIPATION
     Dosage: 30 MILLILITER
     Route: 065
  12. AMBIEN [Concomitant]
     Dosage: 5 MILLIGRAM
     Route: 065
  13. SENNA S [Concomitant]
     Indication: CONSTIPATION
     Route: 065
  14. FENTANYL [Concomitant]
     Indication: PAIN
     Dosage: 75 MICROGRAM/SQ. METER
     Route: 065

REACTIONS (1)
  - DEATH [None]
